FAERS Safety Report 5757067-8 (Version None)
Quarter: 2008Q2

REPORT INFORMATION
  Report Type: 
  Country: None (occurrence: None)
  Receive Date: 20080603
  Receipt Date: 20080521
  Transmission Date: 20081010
  Serious: Yes (Other)
  Sender: FDA-Public Use
  Company Number: B0521881A

PATIENT
  Age: 49 Year
  Sex: Female

DRUGS (1)
  1. AUGMENTIN '125' [Suspect]
     Indication: DRUG USE FOR UNKNOWN INDICATION
     Route: 048
     Dates: start: 20080422, end: 20080422

REACTIONS (6)
  - ANGIOEDEMA [None]
  - ERYTHEMA [None]
  - EYELID OEDEMA [None]
  - PHARYNGOLARYNGEAL DISCOMFORT [None]
  - PRURIGO [None]
  - URTICARIA [None]
